FAERS Safety Report 14581029 (Version 1)
Quarter: 2018Q1

REPORT INFORMATION
  Report Type: Spontaneous
  Country: US (occurrence: US)
  Receive Date: 20180228
  Receipt Date: 20180228
  Transmission Date: 20180509
  Serious: No
  Sender: FDA-Public Use
  Company Number: US-PFIZER INC-2018078607

PATIENT

DRUGS (3)
  1. XANAX [Suspect]
     Active Substance: ALPRAZOLAM
     Dosage: 5 MG, DAILY
  2. XANAX [Suspect]
     Active Substance: ALPRAZOLAM
     Dosage: 3 MG, DAILY
  3. XANAX [Suspect]
     Active Substance: ALPRAZOLAM
     Indication: ANXIETY DISORDER
     Dosage: UNK
     Dates: start: 1994

REACTIONS (2)
  - Drug effect incomplete [Unknown]
  - Intentional product use issue [Unknown]
